FAERS Safety Report 5157954-8 (Version None)
Quarter: 2006Q4

REPORT INFORMATION
  Report Type: 
  Country: None (occurrence: None)
  Receive Date: 20061116
  Receipt Date: 20061103
  Transmission Date: 20070319
  Serious: Yes (Hospitalization)
  Sender: FDA-Public Use
  Company Number: 2006110575

PATIENT
  Age: 63 Year
  Sex: Male
  Weight: 81.6475 kg

DRUGS (16)
  1. CHANTIX [Suspect]
     Indication: SMOKING CESSATION THERAPY
     Dosage: 0.5 MG (0.5 MG, 1 IN 1 D)
     Dates: start: 20060903
  2. GABAPENTIN [Concomitant]
  3. DURAGESIC-100 [Concomitant]
  4. ROXICET [Concomitant]
  5. LUNESTA [Concomitant]
  6. TRAZODONE HCL [Concomitant]
  7. FLONASE [Concomitant]
  8. IPRATROPIUM BROMIDE [Concomitant]
  9. ALBUTEROL [Concomitant]
  10. ADVAIR DISKUS 100/50 [Concomitant]
  11. COMBIVENT [Concomitant]
  12. LISINOPRIL [Concomitant]
  13. PLAVIX [Concomitant]
  14. LIPITOR [Concomitant]
  15. ASPIRIN [Concomitant]
  16. NEXIUM [Concomitant]

REACTIONS (6)
  - CHRONIC OBSTRUCTIVE PULMONARY DISEASE [None]
  - CONDITION AGGRAVATED [None]
  - FATIGUE [None]
  - PAIN [None]
  - PAIN IN EXTREMITY [None]
  - POLLAKIURIA [None]
